FAERS Safety Report 8675058 (Version 4)
Quarter: 2014Q1

REPORT INFORMATION
  Report Type: Spontaneous
  Country: AT (occurrence: AT)
  Receive Date: 20120720
  Receipt Date: 20140116
  Transmission Date: 20141002
  Serious: Yes (Life-Threatening, Hospitalization)
  Sender: FDA-Public Use
  Company Number: AT-SANOFI-AVENTIS-2012SA050113

PATIENT
  Age: 22 Year
  Sex: Female
  Weight: 46 kg

DRUGS (1)
  1. FUROSEMIDE [Suspect]
     Indication: MUSCLE DISORDER
     Route: 065

REACTIONS (18)
  - Hypokalaemia [Recovered/Resolved]
  - Drug abuse [Unknown]
  - Rhabdomyolysis [Recovered/Resolved]
  - Myalgia [Recovered/Resolved]
  - Electrocardiogram abnormal [Recovered/Resolved]
  - Electrocardiogram ST segment abnormal [Recovered/Resolved]
  - Electrocardiogram QT prolonged [Recovered/Resolved]
  - Renal impairment [Recovering/Resolving]
  - Blood creatine phosphokinase increased [Recovered/Resolved]
  - Blood urea increased [Recovered/Resolved]
  - Blood creatinine increased [Recovering/Resolving]
  - Glomerular filtration rate decreased [Recovered/Resolved]
  - Vomiting [Unknown]
  - Diarrhoea [Unknown]
  - Hyponatraemia [Recovered/Resolved]
  - Metabolic alkalosis [Recovering/Resolving]
  - Blood bicarbonate increased [Recovering/Resolving]
  - PCO2 decreased [Not Recovered/Not Resolved]
